FAERS Safety Report 7763615-9 (Version None)
Quarter: 2011Q3

REPORT INFORMATION
  Report Type: 
  Country: None (occurrence: None)
  Receive Date: 20110921
  Receipt Date: 20110909
  Transmission Date: 20111222
  Serious: Yes (Hospitalization, Other)
  Sender: FDA-Public Use
  Company Number: DE-AMGEN-DEUSP2011047159

PATIENT
  Age: 38 Year
  Sex: Male
  Weight: 79 kg

DRUGS (6)
  1. ENBREL [Suspect]
     Indication: ANKYLOSING SPONDYLITIS
     Dosage: 25 MG, 2X/WEEK
     Dates: start: 20100329, end: 20101015
  2. PREDNISOLONE [Concomitant]
     Indication: ANKYLOSING SPONDYLITIS
     Dosage: 10 MG, 1X/DAY
     Dates: start: 20100401
  3. RESOCHIN [Concomitant]
     Indication: ANKYLOSING SPONDYLITIS
     Dosage: UNK
     Dates: start: 20110801, end: 20110101
  4. IBUPROFEN [Concomitant]
     Indication: PAIN
     Dosage: UNK
  5. PREDNISONE [Concomitant]
     Indication: ANKYLOSING SPONDYLITIS
     Dosage: 5 MG, 1X/DAY
     Dates: start: 20100301
  6. ENBREL [Suspect]
     Dosage: 25 MG, WEEKLY
     Dates: start: 20101015, end: 20110701

REACTIONS (4)
  - HYPERHIDROSIS [None]
  - MYOSITIS [None]
  - WEIGHT DECREASED [None]
  - MIXED CONNECTIVE TISSUE DISEASE [None]
